FAERS Safety Report 10199173 (Version 2)
Quarter: 2015Q3

REPORT INFORMATION
  Report Type: Spontaneous
  Country: US (occurrence: US)
  Receive Date: 20140527
  Receipt Date: 20150729
  Transmission Date: 20151125
  Serious: Yes (Hospitalization, Disabling, Other)
  Sender: FDA-Public Use
  Company Number: US-009507513-1405USA011535

PATIENT
  Sex: Male

DRUGS (4)
  1. FOSAMAX [Suspect]
     Active Substance: ALENDRONATE SODIUM
     Indication: OSTEOPOROSIS
     Dosage: 70 MG, QW
     Route: 048
     Dates: start: 199604, end: 201011
  2. FOSAMAX PLUS D [Suspect]
     Active Substance: ALENDRONATE SODIUM\CHOLECALCIFEROL
     Indication: OSTEOPOROSIS
     Route: 048
  3. BONIVA [Suspect]
     Active Substance: IBANDRONATE SODIUM
     Indication: OSTEOPOROSIS
     Dosage: 150 MG, QM
     Route: 048
     Dates: start: 201011, end: 201102
  4. VITAMINS (UNSPECIFIED) [Concomitant]
     Active Substance: VITAMINS
     Indication: ROUTINE HEALTH MAINTENANCE
     Dosage: UNK, QD
     Route: 048
     Dates: start: 1999

REACTIONS (14)
  - Osteoporosis [Not Recovered/Not Resolved]
  - Pain in extremity [Unknown]
  - Femur fracture [Not Recovered/Not Resolved]
  - Femur fracture [Not Recovered/Not Resolved]
  - Arthralgia [Unknown]
  - Gastrointestinal disorder [Unknown]
  - Hypertension [Not Recovered/Not Resolved]
  - Femur fracture [Not Recovered/Not Resolved]
  - Calcium deficiency [Unknown]
  - Tooth extraction [Unknown]
  - Tooth disorder [Unknown]
  - Medical device removal [Unknown]
  - Arthritis [Unknown]
  - Blood cholesterol increased [Not Recovered/Not Resolved]

NARRATIVE: CASE EVENT DATE: 1999
